FAERS Safety Report 6697978-2 (Version None)
Quarter: 2010Q2

REPORT INFORMATION
  Report Type: 
  Country: None (occurrence: None)
  Receive Date: 20100427
  Receipt Date: 20100420
  Transmission Date: 20101027
  Serious: No
  Sender: FDA-Public Use
  Company Number: 2010BI005020

PATIENT
  Sex: Female

DRUGS (1)
  1. TYSABRI [Suspect]
     Indication: MULTIPLE SCLEROSIS
     Route: 042
     Dates: start: 20070524

REACTIONS (4)
  - AMNESIA [None]
  - DRUG EFFECT DECREASED [None]
  - FATIGUE [None]
  - MEMORY IMPAIRMENT [None]
